FAERS Safety Report 20258370 (Version 1)
Quarter: 2021Q4

REPORT INFORMATION
  Report Type: Spontaneous
  Country: US (occurrence: US)
  Receive Date: 20211230
  Receipt Date: 20211230
  Transmission Date: 20220303
  Serious: Yes (Hospitalization)
  Sender: FDA-Public Use
  Company Number: US-NOVARTISPH-NVSC2021US295667

PATIENT
  Age: 49 Year
  Sex: Female

DRUGS (4)
  1. RANITIDINE [Suspect]
     Active Substance: RANITIDINE
     Indication: Dyspepsia
     Dosage: 150 MG, QD
     Route: 048
     Dates: start: 200201, end: 201910
  2. RANITIDINE [Suspect]
     Active Substance: RANITIDINE
     Indication: Urticaria chronic
  3. RANITIDINE [Suspect]
     Active Substance: RANITIDINE
     Indication: Dyspepsia
     Dosage: 150 MG, QD
     Route: 048
     Dates: start: 200201, end: 201910
  4. RANITIDINE [Suspect]
     Active Substance: RANITIDINE
     Indication: Urticaria chronic

REACTIONS (3)
  - Bladder cancer stage II [Recovered/Resolved]
  - Incorrect dose administered [Unknown]
  - Product use in unapproved indication [Unknown]

NARRATIVE: CASE EVENT DATE: 20120801
